FAERS Safety Report 7314755-X (Version None)
Quarter: 2011Q1

REPORT INFORMATION
  Report Type: 
  Country: None (occurrence: None)
  Receive Date: 20110225
  Receipt Date: 20101213
  Transmission Date: 20110831
  Serious: No
  Sender: FDA-Public Use
  Company Number: US-MYLANLABS-2010S1021901

PATIENT
  Age: 15 Year
  Sex: Female
  Weight: 52.62 kg

DRUGS (4)
  1. AMNESTEEM [Suspect]
     Dates: start: 20100531, end: 20100601
  2. AMNESTEEM [Suspect]
     Indication: ACNE
     Dates: start: 20100415, end: 20100531
  3. CLARAVIS [Suspect]
  4. AMNESTEEM [Suspect]
     Dates: start: 20100531, end: 20100601

REACTIONS (1)
  - DRY SKIN [None]
